FAERS Safety Report 4698994-2 (Version None)
Quarter: 2005Q2

REPORT INFORMATION
  Report Type: 
  Country: None (occurrence: None)
  Receive Date: 20050622
  Receipt Date: 20050622
  Transmission Date: 20051028
  Serious: Yes (Life-Threatening, Hospitalization)
  Sender: FDA-Public Use
  Company Number: None

PATIENT
  Age: 77 Year
  Sex: Male
  Weight: 105.1 kg

DRUGS (2)
  1. SOTALOL 80MG PO Q8H [Suspect]
     Indication: ATRIAL FIBRILLATION
     Dosage: 80MG PO Q8H
     Route: 048
     Dates: start: 20050319, end: 20050323
  2. DILTIAZEM [Suspect]
     Dosage: IV
     Route: 042

REACTIONS (3)
  - DYSPNOEA [None]
  - PRODUCTIVE COUGH [None]
  - SPUTUM ABNORMAL [None]
